FAERS Safety Report 19263454 (Version 2)
Quarter: 2021Q2

REPORT INFORMATION
  Report Type: Report from Study
  Country: GR (occurrence: GR)
  Receive Date: 20210517
  Receipt Date: 20210616
  Transmission Date: 20210717
  Serious: Yes (Death, Hospitalization, Other)
  Sender: FDA-Public Use
  Company Number: GR-AMRYT PHARMACEUTICALS DAC-AEGR004954

PATIENT

DRUGS (32)
  1. LOJUXTA AMRYT [Suspect]
     Active Substance: LOMITAPIDE MESYLATE
     Dosage: 20 MILLIGRAM, QOD
     Route: 048
     Dates: start: 20161124
  2. ACENOCOUMAROL [Concomitant]
     Active Substance: ACENOCOUMAROL
     Indication: ANTICOAGULANT THERAPY
     Dosage: 4 MILLIGRAM, PRN
     Route: 048
     Dates: start: 1992
  3. COLESEVELAM [Concomitant]
     Active Substance: COLESEVELAM
     Indication: HYPERCHOLESTEROLAEMIA
     Dosage: 625 MILLIGRAM, QD
     Route: 048
     Dates: start: 2012
  4. OMEGA 3?6?9 [FISH OIL] [Concomitant]
     Active Substance: FISH OIL
     Indication: SUPPLEMENTATION THERAPY
     Dosage: UNK, QD
     Route: 048
     Dates: start: 201411
  5. VERAPAMIL [Concomitant]
     Active Substance: VERAPAMIL HYDROCHLORIDE
     Indication: CARDIAC DISORDER
     Dosage: 80 MILLIGRAM, QD
     Route: 048
     Dates: start: 2010
  6. LOJUXTA AMRYT [Suspect]
     Active Substance: LOMITAPIDE MESYLATE
     Dosage: 20 MILLIGRAM, QOD
     Route: 048
     Dates: start: 20150420, end: 20151019
  7. SOTALOL                            /00371502/ [Concomitant]
     Active Substance: SOTALOL HYDROCHLORIDE
     Indication: HYPERTENSION
     Dosage: 0.25 DF, QD
  8. OMEGA 3                            /01333901/ [Concomitant]
     Active Substance: FISH OIL\TOCOPHEROL
     Indication: SUPPLEMENTATION THERAPY
  9. ATORVASTATIN [Concomitant]
     Active Substance: ATORVASTATIN
     Indication: HYPERCHOLESTEROLAEMIA
     Dosage: 40 MILLIGRAM, QD
     Route: 048
     Dates: start: 2012
  10. LOJUXTA AMRYT [Suspect]
     Active Substance: LOMITAPIDE MESYLATE
     Dosage: 5 MILLIGRAM, QD
     Route: 048
     Dates: start: 20141102, end: 20141219
  11. SOTALOL                            /00371502/ [Concomitant]
     Active Substance: SOTALOL HYDROCHLORIDE
     Indication: CORONARY ARTERY DISEASE
     Dosage: 40 MILLIGRAM, QD
     Route: 048
     Dates: start: 2004
  12. LIPOCOMB [Concomitant]
     Active Substance: EZETIMIBE\ROSUVASTATIN ZINC
     Indication: PRODUCT USED FOR UNKNOWN INDICATION
  13. ENTRESTO [Concomitant]
     Active Substance: SACUBITRIL\VALSARTAN
     Indication: PRODUCT USED FOR UNKNOWN INDICATION
     Dosage: 49+51 MG AM AND 24+26 PM TABLET BID
     Route: 048
  14. LOJUXTA AMRYT [Suspect]
     Active Substance: LOMITAPIDE MESYLATE
     Indication: TYPE IIA HYPERLIPIDAEMIA
     Dosage: 1 TAB, TUE?THU?SAT
     Route: 048
     Dates: start: 201411, end: 20210425
  15. LOJUXTA AMRYT [Suspect]
     Active Substance: LOMITAPIDE MESYLATE
     Dosage: 20MG MON?WED?FRI?SUN AND 10 MG TUE?THUR?SAT
     Route: 048
     Dates: start: 202005, end: 20210425
  16. LASIX [Concomitant]
     Active Substance: FUROSEMIDE
     Indication: PRODUCT USED FOR UNKNOWN INDICATION
     Dosage: UNK, PRN
  17. EZETIMIBE. [Concomitant]
     Active Substance: EZETIMIBE
     Indication: HYPERCHOLESTEROLAEMIA
     Dosage: 10 MILLIGRAM, QD
     Route: 048
     Dates: start: 2012
  18. LOJUXTA AMRYT [Suspect]
     Active Substance: LOMITAPIDE MESYLATE
     Dosage: 10 MILLIGRAM, QOD
     Route: 048
     Dates: start: 20150420, end: 20151019
  19. LOJUXTA AMRYT [Suspect]
     Active Substance: LOMITAPIDE MESYLATE
     Dosage: 20 MG ONCE A WEEK
     Route: 048
     Dates: start: 20151020, end: 20161123
  20. LOJUXTA AMRYT [Suspect]
     Active Substance: LOMITAPIDE MESYLATE
     Dosage: 10 MILLIGRAM, QOD
     Route: 048
     Dates: start: 20161124
  21. SINTROM [Concomitant]
     Active Substance: ACENOCOUMAROL
     Indication: PRODUCT USED FOR UNKNOWN INDICATION
  22. DUOPLAVIN [Concomitant]
     Active Substance: ASPIRIN\CLOPIDOGREL
     Indication: PRODUCT USED FOR UNKNOWN INDICATION
  23. VITAMIN E                          /00110501/ [Concomitant]
     Active Substance: TOCOPHEROL
     Indication: SUPPLEMENTATION THERAPY
     Dosage: 268 MILLIGRAM, QD
     Route: 048
     Dates: start: 201411
  24. ISOSORBIDE. [Concomitant]
     Active Substance: ISOSORBIDE
     Indication: HYPERTENSION
     Dosage: 80 MILLIGRAM, BID
     Route: 048
     Dates: start: 2010
  25. RANITIDINE. [Concomitant]
     Active Substance: RANITIDINE
     Indication: ANTIALLERGIC THERAPY
     Dosage: 150 MILLIGRAM, QD
     Route: 048
     Dates: start: 2013
  26. LOJUXTA AMRYT [Suspect]
     Active Substance: LOMITAPIDE MESYLATE
     Dosage: 10 MILLIGRAM, QD
     Route: 048
     Dates: start: 20141220, end: 20150419
  27. LOJUXTA AMRYT [Suspect]
     Active Substance: LOMITAPIDE MESYLATE
     Dosage: 10 MILLIGRAM, QD
     Route: 048
     Dates: start: 20151020, end: 20161123
  28. CONTROLOC [Concomitant]
     Active Substance: PANTOPRAZOLE SODIUM
     Indication: ABDOMINAL DISCOMFORT
     Dosage: 1 DF, EVERY MORNING
  29. ACETYLSALICYLIC ACID [Concomitant]
     Active Substance: ASPIRIN
     Indication: ANTIPLATELET THERAPY
     Dosage: 100 MILLIGRAM, QD
     Route: 048
     Dates: start: 2000
  30. CLOPIDOGREL [Concomitant]
     Active Substance: CLOPIDOGREL BISULFATE
     Indication: ANTIPLATELET THERAPY
     Dosage: 75 MILLIGRAM, QD
     Route: 048
     Dates: start: 2004
  31. CHOLESTAGEL [Suspect]
     Active Substance: COLESEVELAM HYDROCHLORIDE
     Indication: PRODUCT USED FOR UNKNOWN INDICATION
     Dosage: UNK
     Dates: end: 20201002
  32. RANEXA [Concomitant]
     Active Substance: RANOLAZINE
     Indication: PRODUCT USED FOR UNKNOWN INDICATION

REACTIONS (15)
  - Nosocomial infection [Unknown]
  - Cardiac failure [Fatal]
  - Low density lipoprotein increased [Unknown]
  - Aspartate aminotransferase increased [Unknown]
  - Gastrointestinal haemorrhage [Fatal]
  - Serum ferritin decreased [Unknown]
  - Blood triglycerides decreased [Recovering/Resolving]
  - Alanine aminotransferase increased [Unknown]
  - Myocardial infarction [Fatal]
  - Haematocrit decreased [Recovering/Resolving]
  - Asthenia [Recovered/Resolved]
  - Haematochezia [Unknown]
  - Inappropriate schedule of product administration [Unknown]
  - Blood iron decreased [Unknown]
  - Haemoglobin decreased [Unknown]

NARRATIVE: CASE EVENT DATE: 201411
